FAERS Safety Report 11228607 (Version 2)
Quarter: 2015Q3

REPORT INFORMATION
  Report Type: Report from Study
  Country: NO (occurrence: NO)
  Receive Date: 20150630
  Receipt Date: 20150708
  Transmission Date: 20151125
  Serious: Yes (Hospitalization)
  Sender: FDA-Public Use
  Company Number: NO-ABBVIE-15P-122-1415882-00

PATIENT
  Sex: Female

DRUGS (1)
  1. DUODOPA [Suspect]
     Active Substance: CARBIDOPA\LEVODOPA
     Indication: PRODUCT USED FOR UNKNOWN INDICATION
     Dosage: DURATION: SOME YEARS
     Route: 050

REACTIONS (5)
  - Device dislocation [Unknown]
  - Stoma site extravasation [Unknown]
  - Dyskinesia [Unknown]
  - Restlessness [Unknown]
  - On and off phenomenon [Unknown]
